FAERS Safety Report 18959692 (Version 1)
Quarter: 2021Q1

REPORT INFORMATION
  Report Type: Other
  Country: KR (occurrence: KR)
  Receive Date: 20210302
  Receipt Date: 20210302
  Transmission Date: 20210420
  Serious: Yes (Hospitalization)
  Sender: FDA-Public Use
  Company Number: KR-ROCHE-2749244

PATIENT
  Age: 68 Year
  Sex: Male
  Weight: 62 kg

DRUGS (14)
  1. ATEZOLIZUMAB. [Suspect]
     Active Substance: ATEZOLIZUMAB
     Indication: TRANSITIONAL CELL CARCINOMA
     Dosage: SUBSEQUENT DOSES RECEIVED ON 22/FEB/2018, 14/MAR/2018, 04/APR/2018, 25/APR/2018, 16/MAY/2018, 04/JUN
     Route: 042
     Dates: start: 20180129
  2. METHOTREXATE. [Concomitant]
     Active Substance: METHOTREXATE
     Indication: TRANSITIONAL CELL CARCINOMA
     Route: 042
     Dates: start: 20180406, end: 20180406
  3. METHOTREXATE. [Concomitant]
     Active Substance: METHOTREXATE
     Route: 042
     Dates: start: 20180625, end: 20180625
  4. METHOTREXATE. [Concomitant]
     Active Substance: METHOTREXATE
     Route: 042
     Dates: start: 20180503, end: 20180503
  5. METHOTREXATE. [Concomitant]
     Active Substance: METHOTREXATE
     Route: 042
     Dates: start: 20180419, end: 20180419
  6. METHOTREXATE. [Concomitant]
     Active Substance: METHOTREXATE
     Route: 042
     Dates: start: 20180530, end: 20180530
  7. METHOTREXATE. [Concomitant]
     Active Substance: METHOTREXATE
     Route: 042
     Dates: start: 20180523, end: 20180523
  8. METHOTREXATE. [Concomitant]
     Active Substance: METHOTREXATE
     Route: 042
     Dates: start: 20180615, end: 20180615
  9. METHOTREXATE. [Concomitant]
     Active Substance: METHOTREXATE
     Route: 042
     Dates: start: 20180516, end: 20180516
  10. LIPITOR [Concomitant]
     Active Substance: ATORVASTATIN CALCIUM
     Indication: MYOCARDIAL INFARCTION
     Route: 048
     Dates: start: 2018
  11. AMARYL [Concomitant]
     Active Substance: GLIMEPIRIDE
     Indication: DIABETES MELLITUS
     Route: 048
     Dates: start: 2018
  12. CONCOR [Concomitant]
     Active Substance: BISOPROLOL FUMARATE
     Indication: DIABETES MELLITUS
     Route: 048
     Dates: start: 2018
  13. METHOTREXATE. [Concomitant]
     Active Substance: METHOTREXATE
     Route: 042
     Dates: start: 20180425, end: 20180425
  14. ZEMIMET [Concomitant]
     Indication: DIABETES MELLITUS
     Route: 048
     Dates: start: 2018

REACTIONS (2)
  - Febrile neutropenia [Recovered/Resolved]
  - Neutrophil count decreased [Recovered/Resolved]

NARRATIVE: CASE EVENT DATE: 20180419
